FAERS Safety Report 6683721-X (Version None)
Quarter: 2010Q2

REPORT INFORMATION
  Report Type: 
  Country: None (occurrence: None)
  Receive Date: 20100416
  Receipt Date: 20100407
  Transmission Date: 20101027
  Serious: No
  Sender: FDA-Public Use
  Company Number: US-BIOGENIDEC-2010BI011954

PATIENT
  Age: 56 Year
  Sex: Female

DRUGS (7)
  1. TYSABRI [Suspect]
     Indication: MULTIPLE SCLEROSIS
     Route: 042
     Dates: start: 20080502, end: 20100306
  2. TRAZODONE [Concomitant]
     Indication: DEPRESSION
  3. COGENTIN [Concomitant]
     Indication: DEPRESSION
  4. FLUPHENAZINE [Concomitant]
     Indication: DEPRESSION
  5. WELLBUTRIN [Concomitant]
     Indication: DEPRESSION
  6. SEROQUEL [Concomitant]
     Indication: DEPRESSION
  7. PAMELOR [Concomitant]
     Indication: DEPRESSION

REACTIONS (3)
  - CHEST PAIN [None]
  - HYPERTENSION [None]
  - URINARY RETENTION [None]
